FAERS Safety Report 9897588 (Version 1)
Quarter: 2014Q1

REPORT INFORMATION
  Report Type: Spontaneous
  Country: US (occurrence: US)
  Receive Date: 20140214
  Receipt Date: 20140214
  Transmission Date: 20141002
  Serious: Yes (Life-Threatening, Other)
  Sender: FDA-Public Use
  Company Number: US-ASTELLAS-2014US001407

PATIENT
  Age: 46 Year
  Sex: Male
  Weight: 70 kg

DRUGS (1)
  1. PROGRAF [Suspect]
     Indication: RENAL TRANSPLANT
     Dosage: 3 MG, BID
     Route: 048
     Dates: start: 19970811

REACTIONS (7)
  - Apparent death [Unknown]
  - Procedural complication [Unknown]
  - Skin cancer [Unknown]
  - Amnesia [Unknown]
  - Transplant failure [Unknown]
  - BK virus infection [Unknown]
  - Transplant failure [Unknown]
